FAERS Safety Report 13556342 (Version 1)
Quarter: 2017Q2

REPORT INFORMATION
  Report Type: Spontaneous
  Country: US (occurrence: US)
  Receive Date: 20170517
  Receipt Date: 20170517
  Transmission Date: 20170830
  Serious: Yes (Hospitalization)
  Sender: FDA-Public Use
  Company Number: US-SA-2017SA027401

PATIENT
  Age: 70 Year
  Sex: Female
  Weight: 91.6 kg

DRUGS (6)
  1. SOLOSTAR [Suspect]
     Active Substance: DEVICE
     Indication: TYPE 2 DIABETES MELLITUS
     Dates: start: 20161108
  2. LANTUS [Concomitant]
     Active Substance: INSULIN GLARGINE
  3. SOLOSTAR [Concomitant]
     Active Substance: DEVICE
  4. HUMALOG [Concomitant]
     Active Substance: INSULIN LISPRO
     Indication: DIABETES MELLITUS
     Dosage: 10 TO 13 UNITS WITH MEALS
     Dates: start: 2000
  5. LANTUS SOLOSTAR [Concomitant]
     Active Substance: INSULIN GLARGINE
  6. TOUJEO [Suspect]
     Active Substance: INSULIN GLARGINE
     Indication: TYPE 2 DIABETES MELLITUS
     Dosage: DOSE:22 UNIT(S)
     Route: 065
     Dates: start: 20161108

REACTIONS (4)
  - Blood glucose abnormal [Unknown]
  - Diabetes mellitus inadequate control [Unknown]
  - Device use issue [Unknown]
  - Blood glucose increased [Unknown]
